FAERS Safety Report 8076126-0 (Version None)
Quarter: 2012Q1

REPORT INFORMATION
  Report Type: 
  Country: None (occurrence: None)
  Receive Date: 20120127
  Receipt Date: 20111007
  Transmission Date: 20120608
  Serious: No
  Sender: FDA-Public Use
  Company Number: US-GLAXOSMITHKLINE-A0948250A

PATIENT
  Age: 51 Year
  Sex: Male

DRUGS (2)
  1. NO CONCURRENT MEDICATION [Concomitant]
  2. BUPROPION HYDROCHLORIDE [Suspect]
     Route: 048

REACTIONS (2)
  - DEPRESSION [None]
  - DRUG INEFFECTIVE [None]
